FAERS Safety Report 17538061 (Version 2)
Quarter: 2020Q3

REPORT INFORMATION
  Report Type: Spontaneous
  Country: US (occurrence: US)
  Receive Date: 20200313
  Receipt Date: 20200817
  Transmission Date: 20201102
  Serious: Yes (Other)
  Sender: FDA-Public Use
  Company Number: US-GILEAD-2020-0454519

PATIENT
  Sex: Male

DRUGS (2)
  1. TRUVADA [Suspect]
     Active Substance: EMTRICITABINE\TENOFOVIR DISOPROXIL FUMARATE
     Indication: HIV INFECTION
     Dosage: UNK
     Route: 048
     Dates: start: 20100818, end: 20140427
  2. VIREAD [Suspect]
     Active Substance: TENOFOVIR DISOPROXIL FUMARATE
     Indication: HIV INFECTION
     Dosage: UNK
     Route: 048
     Dates: start: 20161020, end: 20180208

REACTIONS (9)
  - Emotional distress [Unknown]
  - Anxiety [Unknown]
  - Chronic kidney disease [Unknown]
  - Fracture [Unknown]
  - Pain [Unknown]
  - Renal failure [Unknown]
  - Anhedonia [Unknown]
  - Acute kidney injury [Unknown]
  - Economic problem [Unknown]

NARRATIVE: CASE EVENT DATE: 2017
